FAERS Safety Report 13110453 (Version 1)
Quarter: 2017Q1

REPORT INFORMATION
  Report Type: Spontaneous
  Country: US (occurrence: US)
  Receive Date: 20170112
  Receipt Date: 20170112
  Transmission Date: 20170428
  Serious: Yes (Other)
  Sender: FDA-Public Use
  Company Number: US-ROCHE-GNE307393

PATIENT
  Sex: Female
  Weight: 86.09 kg

DRUGS (1)
  1. CATHFLO ACTIVASE [Suspect]
     Active Substance: ALTEPLASE
     Indication: THROMBOSIS
     Dosage: 8 MG, CONTINUOUS
     Route: 042
     Dates: start: 20100927, end: 20100928

REACTIONS (1)
  - Drug ineffective [Unknown]
